FAERS Safety Report 5082687-6 (Version None)
Quarter: 2006Q3

REPORT INFORMATION
  Report Type: 
  Country: None (occurrence: None)
  Receive Date: 20060816
  Receipt Date: 20060816
  Transmission Date: 20061208
  Serious: Yes (Other)
  Sender: FDA-Public Use
  Company Number: None

PATIENT
  Age: 47 Year
  Sex: Male
  Weight: 88.4514 kg

DRUGS (5)
  1. AMBIEN CR [Suspect]
     Indication: INSOMNIA
     Dosage: 1 TAB PRN PO
     Route: 048
     Dates: start: 20060323, end: 20060426
  2. PREMARIN [Concomitant]
  3. SPIROLACTONE [Concomitant]
  4. PROSCAR [Concomitant]
  5. ASPRIN [Concomitant]

REACTIONS (4)
  - CONFUSIONAL STATE [None]
  - LEGAL PROBLEM [None]
  - OVERDOSE [None]
  - ROAD TRAFFIC ACCIDENT [None]
